FAERS Safety Report 8422782-4 (Version None)
Quarter: 2012Q2

REPORT INFORMATION
  Report Type: 
  Country: None (occurrence: None)
  Receive Date: 20120608
  Receipt Date: 20120529
  Transmission Date: 20120825
  Serious: Yes (Other)
  Sender: FDA-Public Use
  Company Number: CN-MERCK-1206USA00949

PATIENT
  Age: 84 Year
  Sex: Male

DRUGS (1)
  1. PROSCAR [Suspect]
     Indication: BENIGN PROSTATIC HYPERPLASIA
     Route: 048
     Dates: start: 20090101

REACTIONS (4)
  - PROSTATE CANCER [None]
  - URINARY RETENTION [None]
  - NEOPLASM PROGRESSION [None]
  - PROSTATE CANCER RECURRENT [None]
